FAERS Safety Report 9877940 (Version 1)
Quarter: 2014Q1

REPORT INFORMATION
  Report Type: Spontaneous
  Country: US (occurrence: US)
  Receive Date: 20140206
  Receipt Date: 20140206
  Transmission Date: 20141002
  Serious: Yes (Other)
  Sender: FDA-Public Use
  Company Number: US-BAXTER-2014BAX005563

PATIENT
  Age: 35 Year
  Sex: Female

DRUGS (5)
  1. CYCLOPHOSPHAMIDE FOR INJECTION, USP [Suspect]
     Indication: BREAST CANCER
     Route: 065
  2. CYCLOPHOSPHAMIDE FOR INJECTION, USP [Suspect]
     Route: 065
     Dates: start: 19920501
  3. ADRIAMYCIN [Suspect]
     Indication: BREAST CANCER
     Route: 065
  4. 5-FLUOROURACIL [Suspect]
     Indication: BREAST CANCER
     Route: 065
  5. THIOTEPA [Suspect]
     Indication: BREAST CANCER
     Dates: start: 19920501

REACTIONS (1)
  - Atrioventricular block complete [Recovered/Resolved]
